FAERS Safety Report 15715268 (Version 2)
Quarter: 2019Q2

REPORT INFORMATION
  Report Type: Spontaneous
  Country: US (occurrence: US)
  Receive Date: 20181212
  Receipt Date: 20190410
  Transmission Date: 20190711
  Serious: Yes (Hospitalization, Other)
  Sender: FDA-Public Use
  Company Number: US-PFIZER INC-2018510084

PATIENT
  Sex: Female

DRUGS (2)
  1. AMIODARONE HCL [Suspect]
     Active Substance: AMIODARONE HYDROCHLORIDE
     Indication: ATRIAL FIBRILLATION
     Dosage: 200 MG, AS PRESCRIBED
     Route: 048
     Dates: start: 201506
  2. AMIODARONE [Suspect]
     Active Substance: AMIODARONE
     Indication: ATRIAL FIBRILLATION
     Dosage: 200 MG, AS PRESCRIBED
     Route: 048
     Dates: start: 201506

REACTIONS (7)
  - Oedema [Unknown]
  - Renal disorder [Unknown]
  - Hypothyroidism [Unknown]
  - Dizziness [Unknown]
  - Interstitial lung disease [Unknown]
  - Blindness [Unknown]
  - Product use in unapproved indication [Unknown]

NARRATIVE: CASE EVENT DATE: 201604
